FAERS Safety Report 10970694 (Version 5)
Quarter: 2016Q2

REPORT INFORMATION
  Report Type: Spontaneous
  Country: US (occurrence: US)
  Receive Date: 20150331
  Receipt Date: 20160526
  Transmission Date: 20160815
  Serious: Yes (Other)
  Sender: FDA-Public Use
  Company Number: US-PFIZER INC-2015104192

PATIENT
  Age: 58 Year
  Sex: Male
  Weight: 63 kg

DRUGS (12)
  1. TAMSULOSIN [Concomitant]
     Active Substance: TAMSULOSIN
     Indication: PROSTATOMEGALY
     Dosage: 0.04 MG, UNK
  2. CREON [Concomitant]
     Active Substance: PANCRELIPASE AMYLASE\PANCRELIPASE LIPASE\PANCRELIPASE PROTEASE
     Indication: PANCREATIC DISORDER
     Dosage: 36000 IU, 4X/DAY (2 WITH EVERY MEAL SO 8 CAPSULES A DAY)
  3. ASPIRIN. [Concomitant]
     Active Substance: ASPIRIN
     Indication: ATRIOVENTRICULAR BLOCK
     Dosage: 1 DF, UNK
  4. FUROSEMIDE. [Concomitant]
     Active Substance: FUROSEMIDE
     Indication: RENAL DISORDER
     Dosage: 40 MG, 2X/DAY
  5. RAPAMUNE [Suspect]
     Active Substance: SIROLIMUS
     Dosage: 1 MG, 1X/DAY (WITH MEAL )
     Route: 048
     Dates: start: 19750904
  6. RAPAMUNE [Suspect]
     Active Substance: SIROLIMUS
     Dosage: 3 MG, 1X/DAY (1MG TABLET, 3 TABLETS BY MOUTH EVERY MORNING)
     Route: 048
     Dates: start: 2004
  7. CREON [Concomitant]
     Active Substance: PANCRELIPASE AMYLASE\PANCRELIPASE LIPASE\PANCRELIPASE PROTEASE
     Dosage: 36000 IU, 2 WITH EACH MEAL
  8. RAPAMUNE [Suspect]
     Active Substance: SIROLIMUS
     Indication: PANCREATIC DISORDER
     Dosage: 1 MG, 1X/DAY
     Route: 048
     Dates: start: 2004
  9. TACROLIMUS. [Suspect]
     Active Substance: TACROLIMUS
     Indication: PANCREATIC DISORDER
     Dosage: 1 MG, DAILY (1MG, CAPSULES, 9 OR 10 DAILY)
     Dates: start: 2004
  10. PROGRAF [Concomitant]
     Active Substance: TACROLIMUS\TACROLIMUS ANHYDROUS
     Dosage: 1 MG, 3X/DAY TWO IN MORNING AND ONE AT NIGHT
     Route: 048
  11. LISINOPRIL. [Concomitant]
     Active Substance: LISINOPRIL
     Indication: RENAL DISORDER
     Dosage: 10 MG, 1X/DAY
  12. MYRBETRIQ [Concomitant]
     Active Substance: MIRABEGRON
     Dosage: 50 MG, 1X/DAY

REACTIONS (11)
  - Renal impairment [Not Recovered/Not Resolved]
  - Overdose [Recovering/Resolving]
  - Vision blurred [Not Recovered/Not Resolved]
  - Diarrhoea [Recovered/Resolved]
  - Malaise [Unknown]
  - Amnesia [Not Recovered/Not Resolved]
  - Eating disorder [Unknown]
  - Product use issue [Unknown]
  - Loss of consciousness [Unknown]
  - Abdominal pain upper [Unknown]
  - Fatigue [Recovered/Resolved]

NARRATIVE: CASE EVENT DATE: 2014
